FAERS Safety Report 8105376-X (Version None)
Quarter: 2012Q1

REPORT INFORMATION
  Report Type: 
  Country: None (occurrence: None)
  Receive Date: 20120201
  Receipt Date: 20120128
  Transmission Date: 20120608
  Serious: Yes (Other)
  Sender: FDA-Public Use
  Company Number: PHEH2012US002554

PATIENT
  Sex: Male

DRUGS (6)
  1. NEORAL [Suspect]
     Indication: RENAL AND PANCREAS TRANSPLANT
     Dosage: 25 MG, 3 DAILY
     Route: 048
  2. FOSAMAX [Concomitant]
  3. MULTI-VITAMINS [Concomitant]
  4. PREDNISONE TAB [Concomitant]
  5. AXID [Concomitant]
  6. MYCOPHENOLATE MOFETIL (CELLCEPT) [Concomitant]

REACTIONS (1)
  - EYE HAEMORRHAGE [None]
